FAERS Safety Report 6402443-3 (Version None)
Quarter: 2009Q4

REPORT INFORMATION
  Report Type: 
  Country: None (occurrence: None)
  Receive Date: 20091015
  Receipt Date: 20091006
  Transmission Date: 20100525
  Serious: Yes (Hospitalization)
  Sender: FDA-Public Use
  Company Number: KR-ELI_LILLY_AND_COMPANY-KR200910000970

PATIENT
  Age: 65 Year
  Sex: Female

DRUGS (8)
  1. BYETTA [Suspect]
     Indication: TYPE 2 DIABETES MELLITUS
     Dosage: 5 UG, 2/D
     Route: 058
     Dates: start: 20090514, end: 20090619
  2. BYETTA [Suspect]
     Dosage: 10 UG, 2/D
     Route: 058
     Dates: start: 20090620, end: 20091005
  3. BYETTA [Suspect]
     Dosage: 10 UG, 2/D
     Route: 058
     Dates: start: 20091012
  4. HUMALOG [Concomitant]
     Indication: TYPE 2 DIABETES MELLITUS
     Dosage: UNK, UNKNOWN
     Route: 058
     Dates: start: 20060101, end: 20090801
  5. HUMALOG [Concomitant]
     Dosage: 10 U, EACH MORNING
     Route: 058
     Dates: start: 20090808, end: 20091010
  6. HUMALOG [Concomitant]
     Dosage: 20 U, EACH EVENING
     Route: 058
     Dates: start: 20090808, end: 20091010
  7. HUMALOG [Concomitant]
     Dosage: 30 U, EACH MORNING
     Route: 058
     Dates: start: 20091012
  8. HUMALOG [Concomitant]
     Dosage: 10 U, EACH EVENING
     Route: 058
     Dates: start: 20091012

REACTIONS (3)
  - BLOOD GLUCOSE INCREASED [None]
  - OFF LABEL USE [None]
  - SUDDEN HEARING LOSS [None]
